FAERS Safety Report 9305178 (Version 3)
Quarter: 2013Q3

REPORT INFORMATION
  Report Type: Report from Study
  Country: CA (occurrence: CA)
  Receive Date: 20130523
  Receipt Date: 20130828
  Transmission Date: 20140515
  Serious: Yes (Other)
  Sender: FDA-Public Use
  Company Number: CA-JNJFOC-20130513804

PATIENT
  Age: 55 Year
  Sex: Male
  Weight: 76 kg

DRUGS (6)
  1. REMICADE [Suspect]
     Indication: PSORIATIC ARTHROPATHY
     Dosage: INITIATED IN APPROXIMATELY 2005
     Route: 042
  2. ACETYL SALICYLIC ACID [Concomitant]
     Route: 065
  3. INSULIN [Concomitant]
     Route: 065
  4. COVERSYL [Concomitant]
     Route: 065
  5. CRESTOR [Concomitant]
     Route: 065
  6. PENTETRAZOL [Concomitant]
     Route: 065

REACTIONS (3)
  - Rotator cuff syndrome [Not Recovered/Not Resolved]
  - Fall [Not Recovered/Not Resolved]
  - Joint dislocation [Not Recovered/Not Resolved]
